FAERS Safety Report 9615217 (Version 1)
Quarter: 2013Q4

REPORT INFORMATION
  Report Type: Spontaneous
  Country: US (occurrence: None)
  Receive Date: 20131009
  Receipt Date: 20131009
  Transmission Date: 20140711
  Serious: No
  Sender: FDA-Public Use
  Company Number: None

PATIENT
  Age: 57 Year
  Sex: Female
  Weight: 77.11 kg

DRUGS (8)
  1. METHOTREXATE [Suspect]
     Indication: RHEUMATOID ARTHRITIS
     Dosage: .8 ML
     Dates: start: 2009
  2. EMBREL [Concomitant]
  3. FOLIC ACID [Concomitant]
  4. MELOXICAM [Concomitant]
  5. RED RICE YEAST [Concomitant]
  6. CALCIUM [Concomitant]
  7. VITAMIN D [Concomitant]
  8. VITAMIN B [Concomitant]

REACTIONS (1)
  - Parosmia [None]
